FAERS Safety Report 20461470 (Version 2)
Quarter: 2022Q1

REPORT INFORMATION
  Report Type: Spontaneous
  Country: US (occurrence: US)
  Receive Date: 20220211
  Receipt Date: 20220303
  Transmission Date: 20220424
  Serious: Yes (Hospitalization, Other)
  Sender: FDA-Public Use
  Company Number: US-009507513-2202USA002568

PATIENT
  Age: 66 Year
  Sex: Male

DRUGS (1)
  1. KEYTRUDA [Suspect]
     Active Substance: PEMBROLIZUMAB
     Indication: Bladder cancer
     Dosage: 1 INFUSION EVERY 6 WEEKS
     Route: 042
     Dates: start: 20211210

REACTIONS (20)
  - Heart rate irregular [Recovered/Resolved]
  - Blood creatinine decreased [Recovering/Resolving]
  - Headache [Unknown]
  - Constipation [Unknown]
  - Vomiting [Unknown]
  - Rash [Unknown]
  - Diarrhoea [Unknown]
  - Hydronephrosis [Unknown]
  - Acute kidney injury [Recovering/Resolving]
  - Malignant neoplasm progression [Unknown]
  - Hydroureter [Unknown]
  - Normocytic anaemia [Unknown]
  - Haematuria [Recovering/Resolving]
  - Renal cyst [Unknown]
  - Ureteric obstruction [Unknown]
  - Bladder hypertrophy [Unknown]
  - Nausea [Unknown]
  - Gastrooesophageal reflux disease [Unknown]
  - Palpitations [Unknown]
  - Urinary retention [Unknown]

NARRATIVE: CASE EVENT DATE: 20220101
